FAERS Safety Report 11241912 (Version 1)
Quarter: 2015Q3

REPORT INFORMATION
  Report Type: Spontaneous
  Country: None (occurrence: FR)
  Receive Date: 20150706
  Receipt Date: 20150706
  Transmission Date: 20151125
  Serious: Yes (Death, Hospitalization)
  Sender: FDA-Public Use
  Company Number: FR-MEDAC PHARMA, INC.-1040364

PATIENT
  Age: 79 Year
  Sex: Female

DRUGS (14)
  1. METOJECT [Suspect]
     Active Substance: METHOTREXATE SODIUM
     Indication: RHEUMATOID ARTHRITIS
     Route: 058
     Dates: start: 201307, end: 201505
  2. PHENOBARBITAL. [Concomitant]
     Active Substance: PHENOBARBITAL
  3. FUMAFER [Concomitant]
     Active Substance: FERROUS FUMARATE
  4. RAMIPRIL. [Concomitant]
     Active Substance: RAMIPRIL
  5. TROSPIUM CHLORIDE. [Concomitant]
     Active Substance: TROSPIUM CHLORIDE
  6. KEPPRA [Concomitant]
     Active Substance: LEVETIRACETAM
  7. FOSAMAX [Concomitant]
     Active Substance: ALENDRONATE SODIUM
  8. INEXIUM [Concomitant]
     Active Substance: ESOMEPRAZOLE
  9. LANSOYL [Concomitant]
     Active Substance: MINERAL OIL
  10. PREDNISONE. [Concomitant]
     Active Substance: PREDNISONE
  11. FLUOXETINE [Concomitant]
     Active Substance: FLUOXETINE\FLUOXETINE HYDROCHLORIDE
  12. FOLIC ACID. [Concomitant]
     Active Substance: FOLIC ACID
  13. AMLODIPINE BESYLATE. [Concomitant]
     Active Substance: AMLODIPINE BESYLATE
  14. URBANYL [Concomitant]
     Active Substance: CLOBAZAM

REACTIONS (3)
  - Status epilepticus [Fatal]
  - Altered state of consciousness [Fatal]
  - Bone marrow failure [Recovered/Resolved]

NARRATIVE: CASE EVENT DATE: 20150505
